FAERS Safety Report 8327713-3 (Version None)
Quarter: 2012Q2

REPORT INFORMATION
  Report Type: 
  Country: None (occurrence: None)
  Receive Date: 20120502
  Receipt Date: 20120424
  Transmission Date: 20120825
  Serious: No
  Sender: FDA-Public Use
  Company Number: US-PFIZER INC-2011261190

PATIENT
  Sex: Female

DRUGS (3)
  1. EPIPEN [Suspect]
     Indication: ASTHMA
     Dosage: 0.3 MG, UNK
  2. TWINJECT 0.3 [Suspect]
     Indication: ASTHMA
     Dosage: UNK
  3. MAXAIR [Concomitant]

REACTIONS (3)
  - DRUG INEFFECTIVE [None]
  - EXPIRED DRUG ADMINISTERED [None]
  - APPLICATION SITE HAEMATOMA [None]
